FAERS Safety Report 9552388 (Version 1)
Quarter: 2013Q3

REPORT INFORMATION
  Report Type: Spontaneous
  Country: US (occurrence: None)
  Receive Date: 20130805
  Receipt Date: 20130805
  Transmission Date: 20140515
  Serious: Yes (Hospitalization)
  Sender: FDA-Public Use
  Company Number: 1302USA010293

PATIENT
  Age: 36 Year
  Sex: Male
  Weight: 90.7 kg

DRUGS (2)
  1. REMERON [Suspect]
     Indication: DEPRESSION
     Route: 048
     Dates: start: 201111, end: 201202
  2. REMERON [Suspect]
     Indication: ANXIETY
     Route: 048
     Dates: start: 201111, end: 201202

REACTIONS (6)
  - Depression [None]
  - Hunger [None]
  - Back pain [None]
  - Somnolence [None]
  - Malaise [None]
  - Pain [None]
